APPROVED DRUG PRODUCT: SYNOVALYTE IN PLASTIC CONTAINER
Active Ingredient: MAGNESIUM CHLORIDE; POTASSIUM CHLORIDE; SODIUM ACETATE; SODIUM CHLORIDE; SODIUM GLUCONATE
Strength: 30MG/100ML;37MG/100ML;368MG/100ML;526MG/100ML;502MG/100ML
Dosage Form/Route: SOLUTION;IRRIGATION
Application: N019326 | Product #001
Applicant: BAXTER HEALTHCARE CORP
Approved: Jan 25, 1985 | RLD: No | RS: No | Type: DISCN